FAERS Safety Report 9119409 (Version 1)
Quarter: 2013Q1

REPORT INFORMATION
  Report Type: Spontaneous
  Country: US (occurrence: None)
  Receive Date: 20130222
  Receipt Date: 20130222
  Transmission Date: 20140127
  Serious: Yes (Other)
  Sender: FDA-Public Use
  Company Number: None

PATIENT
  Sex: Female
  Weight: 110.22 kg

DRUGS (1)
  1. VALSARTAN/HCTZ DIOVAN/HCT GENERIC 320/12.5 MYLAN [Suspect]
     Indication: HYPERTENSION
     Dosage: ONE TAB  DAILY ORAL
     Route: 048

REACTIONS (5)
  - Headache [None]
  - Dizziness [None]
  - Nausea [None]
  - Blood pressure increased [None]
  - Product substitution issue [None]
